FAERS Safety Report 9106310 (Version 4)
Quarter: 2013Q4

REPORT INFORMATION
  Report Type: Spontaneous
  Country: FR (occurrence: FR)
  Receive Date: 20130220
  Receipt Date: 20131103
  Transmission Date: 20140711
  Serious: Yes (Life-Threatening, Hospitalization)
  Sender: FDA-Public Use
  Company Number: FR-JNJFOC-20130211293

PATIENT
  Age: 58 Year
  Sex: Male

DRUGS (7)
  1. IBUPROFEN [Suspect]
     Indication: PRODUCT USED FOR UNKNOWN INDICATION
     Route: 048
  2. SOLU-MEDROL [Suspect]
     Indication: PRODUCT USED FOR UNKNOWN INDICATION
     Route: 048
     Dates: start: 20121231
  3. SOLU-MEDROL [Suspect]
     Indication: PRODUCT USED FOR UNKNOWN INDICATION
     Route: 048
     Dates: start: 20121228, end: 20121230
  4. MOMETASONE FUROATE [Concomitant]
     Indication: COUGH
     Route: 065
     Dates: start: 20121228
  5. MOMETASONE FUROATE [Concomitant]
     Indication: PYREXIA
     Route: 065
     Dates: start: 20121228
  6. CEFTRIAXONE [Concomitant]
     Indication: COUGH
     Route: 065
     Dates: start: 20121228
  7. CEFTRIAXONE [Concomitant]
     Indication: PYREXIA
     Route: 065
     Dates: start: 20121228

REACTIONS (8)
  - Emphysema [Recovering/Resolving]
  - Pneumonia [Recovering/Resolving]
  - Systemic inflammatory response syndrome [Recovering/Resolving]
  - Blood pressure decreased [Recovering/Resolving]
  - Heart rate decreased [Recovering/Resolving]
  - Pulmonary embolism [Recovering/Resolving]
  - Hilar lymphadenopathy [Recovering/Resolving]
  - Alveolar lung disease [Recovering/Resolving]
